FAERS Safety Report 19164138 (Version 3)
Quarter: 2024Q4

REPORT INFORMATION
  Report Type: Spontaneous
  Country: US (occurrence: US)
  Receive Date: 20210421
  Receipt Date: 20241227
  Transmission Date: 20250114
  Serious: No
  Sender: SANOFI AVENTIS
  Company Number: US-SA-SAC20210416001019

PATIENT
  Age: 20 Year
  Sex: Female

DRUGS (2)
  1. DUPIXENT [Suspect]
     Active Substance: DUPILUMAB
     Indication: Dermatitis atopic
     Dosage: 200 MG, QOW
     Route: 058
     Dates: start: 202012
  2. DUPIXENT [Suspect]
     Active Substance: DUPILUMAB
     Dosage: UNK
     Route: 058

REACTIONS (9)
  - Skin infection [Unknown]
  - Skin weeping [Unknown]
  - Skin fissures [Unknown]
  - Scab [Unknown]
  - Dry skin [Unknown]
  - Pruritus [Unknown]
  - Ocular hyperaemia [Unknown]
  - Erythema [Unknown]
  - Drug ineffective [Unknown]
